FAERS Safety Report 6928727-8 (Version None)
Quarter: 2010Q3

REPORT INFORMATION
  Report Type: 
  Country: None (occurrence: None)
  Receive Date: 20100817
  Receipt Date: 20100812
  Transmission Date: 20110219
  Serious: Yes (Hospitalization)
  Sender: FDA-Public Use
  Company Number: D0068227A

PATIENT
  Age: 51 Year
  Sex: Male

DRUGS (5)
  1. ARIXTRA [Suspect]
     Indication: PULMONARY EMBOLISM
     Route: 065
     Dates: start: 20091206, end: 20100208
  2. BISOPROLOL [Concomitant]
     Indication: HYPERTENSION
     Route: 065
  3. PANTOPRAZOLE [Concomitant]
     Indication: HYPERTENSION
     Route: 065
  4. TORSEMIDE [Concomitant]
     Indication: HYPERTENSION
     Route: 065
  5. FORTECORTIN [Concomitant]
     Indication: BRAIN NEOPLASM
     Route: 065

REACTIONS (4)
  - ABDOMINAL SYMPTOM [None]
  - GAMMA-GLUTAMYLTRANSFERASE INCREASED [None]
  - OESOPHAGEAL CANDIDIASIS [None]
  - TRANSAMINASES INCREASED [None]
